FAERS Safety Report 6441908-5 (Version None)
Quarter: 2009Q4

REPORT INFORMATION
  Report Type: 
  Country: None (occurrence: None)
  Receive Date: 20091116
  Receipt Date: 20091110
  Transmission Date: 20100525
  Serious: Yes (Hospitalization)
  Sender: FDA-Public Use
  Company Number: US-B.I. PHARMACEUTICALS,INC./RIDGEFIELD-2009-BP-13137BP

PATIENT
  Sex: Female

DRUGS (2)
  1. COMBIVENT [Suspect]
     Indication: CHRONIC OBSTRUCTIVE PULMONARY DISEASE
     Route: 055
     Dates: start: 20081101
  2. COMBIVENT [Suspect]
     Dosage: 8 PUF
     Route: 055
     Dates: start: 20000101, end: 20081101

REACTIONS (13)
  - BLOOD POTASSIUM DECREASED [None]
  - CHRONIC OBSTRUCTIVE PULMONARY DISEASE [None]
  - COW'S MILK INTOLERANCE [None]
  - DIABETES MELLITUS [None]
  - DRUG EFFECT DECREASED [None]
  - DRUG INEFFECTIVE [None]
  - FLATULENCE [None]
  - HYPERTENSION [None]
  - NEPHROLITHIASIS [None]
  - OVERDOSE [None]
  - SEASONAL ALLERGY [None]
  - STAPHYLOCOCCAL INFECTION [None]
  - UMBILICAL HERNIA [None]
